FAERS Safety Report 9646124 (Version 1)
Quarter: 2013Q4

REPORT INFORMATION
  Report Type: Spontaneous
  Country: NO (occurrence: None)
  Receive Date: 20131024
  Receipt Date: 20131024
  Transmission Date: 20140711
  Serious: Yes (Other)
  Sender: FDA-Public Use
  Company Number: 2013-003327

PATIENT
  Sex: Female

DRUGS (3)
  1. DORYX [Suspect]
     Dates: start: 20100723, end: 201008
  2. RIFAMPICIN [Suspect]
     Indication: PROPHYLAXIS
     Dates: start: 20100723, end: 201008
  3. CERAZETTE ( DESOGESTREL) [Concomitant]

REACTIONS (12)
  - Fatigue [None]
  - Arthralgia [None]
  - Headache [None]
  - Asthenia [None]
  - Nausea [None]
  - Dizziness [None]
  - Hot flush [None]
  - Cold sweat [None]
  - Pyrexia [None]
  - Hyperacusis [None]
  - Palpitations [None]
  - Exposure to toxic agent [None]
